FAERS Safety Report 16558292 (Version 1)
Quarter: 2019Q3

REPORT INFORMATION
  Report Type: Spontaneous
  Country: US (occurrence: US)
  Receive Date: 20190711
  Receipt Date: 20190711
  Transmission Date: 20191004
  Serious: Yes (Other)
  Sender: FDA-Public Use
  Company Number: US-BAYER-2019-126477

PATIENT
  Sex: Female

DRUGS (2)
  1. MIRENA [Suspect]
     Active Substance: LEVONORGESTREL
  2. MIRENA [Suspect]
     Active Substance: LEVONORGESTREL
     Dosage: 20 MCG/24HR, CONT
     Route: 015
     Dates: start: 2017

REACTIONS (21)
  - Ectopic pregnancy with contraceptive device [None]
  - Pain [None]
  - Depression [None]
  - Vertigo [None]
  - Feeling abnormal [None]
  - Haemorrhage in pregnancy [None]
  - Abdominal pain [None]
  - Dizziness [None]
  - Asthenia [None]
  - Drug ineffective [None]
  - Procedural pain [None]
  - Emotional distress [None]
  - Vomiting [None]
  - Crying [None]
  - Vision blurred [None]
  - Muscular weakness [None]
  - Fall [None]
  - Ruptured ectopic pregnancy [None]
  - Loss of consciousness [None]
  - Menstruation irregular [None]
  - Nausea [None]
